FAERS Safety Report 14406722 (Version 1)
Quarter: 2018Q1

REPORT INFORMATION
  Report Type: Spontaneous
  Country: US (occurrence: US)
  Receive Date: 20180118
  Receipt Date: 20180118
  Transmission Date: 20180509
  Serious: No
  Sender: FDA-Public Use
  Company Number: US-TOLMAR, INC.-TOLG20180027

PATIENT

DRUGS (1)
  1. ADAPALENE. [Suspect]
     Active Substance: ADAPALENE
     Indication: PRODUCT USED FOR UNKNOWN INDICATION
     Dosage: ON OVERALL FACE AND SITE WHERE BASAL CELL REMOVED
     Route: 061

REACTIONS (1)
  - Skin wound [Not Recovered/Not Resolved]
